FAERS Safety Report 7888635-5 (Version None)
Quarter: 2011Q4

REPORT INFORMATION
  Report Type: 
  Country: None (occurrence: None)
  Receive Date: 20111103
  Receipt Date: 20111027
  Transmission Date: 20120403
  Serious: Yes (Life-Threatening, Hospitalization)
  Sender: FDA-Public Use
  Company Number: US-ROCHE-797570

PATIENT
  Age: 59 Year
  Sex: Female
  Weight: 62 kg

DRUGS (4)
  1. CYCLOPHOSPHAMIDE [Suspect]
     Indication: BREAST CANCER
     Dosage: FREQUENCY: OVER 20-30 MIN ON DAY 1 OF CYCLE (21 DAYS), LAST DOSE ADMINISTERED: 17 FEBRUARY 2011
     Route: 042
  2. AVASTIN [Suspect]
     Indication: BREAST CANCER
     Dosage: FREQUENCY: OVER 30-90 MIN ON DAY 1 OF CYCLE (21 DAYS), LAST DOSE ADMINISTERED: 17 FEBRUARY 2011
     Route: 042
  3. PACLITAXEL [Suspect]
     Indication: BREAST CANCER
     Dosage: FREQUENCY: OVER 1 HR ON DAYS 1, 8 AND 15 (CYCLE: 21 DAYS) LAST DOSE ADMINISTERED: 16 JUNE 2011
     Route: 042
  4. DOXORUBICIN HCL [Suspect]
     Indication: BREAST CANCER
     Dosage: FREQUENCY: ON DAY 1 OF CYCLE (21 DAYS), LAST DOSE ADMINISTERED: 17 FEBRUARY 2011
     Route: 042

REACTIONS (6)
  - ACIDOSIS [None]
  - HYPERGLYCAEMIA [None]
  - HYPERNATRAEMIA [None]
  - HYPOTENSION [None]
  - PLATELET COUNT DECREASED [None]
  - GLUCOSE TOLERANCE IMPAIRED [None]
